FAERS Safety Report 8905466 (Version 3)
Quarter: 2013Q2

REPORT INFORMATION
  Report Type: Spontaneous
  Country: US (occurrence: US)
  Receive Date: 20121112
  Receipt Date: 20130425
  Transmission Date: 20140414
  Serious: No
  Sender: FDA-Public Use
  Company Number: US-009507513-1211USA003699

PATIENT
  Age: 18 Year
  Sex: Female
  Weight: 96.15 kg

DRUGS (2)
  1. IMPLANON [Suspect]
     Indication: CONTRACEPTION
     Dosage: UNK
     Route: 059
     Dates: start: 20121001, end: 20121107
  2. IMPLANON [Suspect]
     Dosage: 1 DF, UNK
     Route: 059
     Dates: start: 201211

REACTIONS (3)
  - Implant site pain [Unknown]
  - Device difficult to use [Unknown]
  - Device kink [Unknown]
